FAERS Safety Report 4897569-X (Version None)
Quarter: 2005Q4

REPORT INFORMATION
  Report Type: 
  Country: None (occurrence: None)
  Receive Date: 20051223
  Receipt Date: 20050908
  Transmission Date: 20060501
  Serious: No
  Sender: FDA-Public Use
  Company Number: 05P-163-0310574-00

PATIENT
  Age: 65 Year
  Sex: Female
  Weight: 52.1637 kg

DRUGS (11)
  1. HUMIRA [Suspect]
     Indication: RHEUMATOID ARTHRITIS
     Dosage: 40 MG, 1 IN 2 WK, SUBCUTANEOUS
     Route: 058
     Dates: start: 20030503
  2. LEFLUNOMIDE [Concomitant]
  3. LISINOPRIL [Concomitant]
  4. ATENOLOL [Concomitant]
  5. FELODIPINE [Concomitant]
  6. PANTOPRAZOLE [Concomitant]
  7. PREDNISONE [Concomitant]
  8. LORAZEPAM [Concomitant]
  9. METHOTREXATE [Concomitant]
  10. CALCIUM GLUCONATE [Concomitant]
  11. FOLIC ACID [Concomitant]

REACTIONS (1)
  - INJECTION SITE HAEMORRHAGE [None]
